FAERS Safety Report 21943810 (Version 1)
Quarter: 2023Q1

REPORT INFORMATION
  Report Type: Spontaneous
  Country: US (occurrence: None)
  Receive Date: 20230201
  Receipt Date: 20230201
  Transmission Date: 20230418
  Serious: Yes (Hospitalization)
  Sender: FDA-Public Use
  Company Number: None

PATIENT
  Age: 69 Year
  Sex: Male

DRUGS (1)
  1. PEGASYS [Suspect]
     Active Substance: PEGINTERFERON ALFA-2A
     Dosage: OTHER STRENGTH : 180/0.5 UG/ML;?
     Route: 058
     Dates: start: 202212

REACTIONS (3)
  - Nephrolithiasis [None]
  - Staphylococcal infection [None]
  - Sepsis [None]

NARRATIVE: CASE EVENT DATE: 20230131
